FAERS Safety Report 14616681 (Version 1)
Quarter: 2018Q1

REPORT INFORMATION
  Report Type: Spontaneous
  Country: US (occurrence: US)
  Receive Date: 20180308
  Receipt Date: 20180308
  Transmission Date: 20180509
  Serious: Yes (Death)
  Sender: FDA-Public Use
  Company Number: None

PATIENT
  Age: 27 Year
  Sex: Male

DRUGS (7)
  1. ANTACIDS [Concomitant]
     Active Substance: UNSPECIFIED INGREDIENT
  2. SEROQUEL [Concomitant]
     Active Substance: QUETIAPINE FUMARATE
  3. KEPPRA [Concomitant]
     Active Substance: LEVETIRACETAM
  4. MALOXINE [Concomitant]
     Active Substance: PYRIMETHAMINE\SULFADOXINE
  5. IMODIUM [Suspect]
     Active Substance: LOPERAMIDE HYDROCHLORIDE
     Indication: NEURALGIA
  6. CYMBALTA [Concomitant]
     Active Substance: DULOXETINE HYDROCHLORIDE
  7. ATENOLOL. [Concomitant]
     Active Substance: ATENOLOL

REACTIONS (2)
  - Overdose [None]
  - Pain [None]

NARRATIVE: CASE EVENT DATE: 20161021
